FAERS Safety Report 4331134-8 (Version None)
Quarter: 2004Q1

REPORT INFORMATION
  Report Type: 
  Country: None (occurrence: None)
  Receive Date: 20040331
  Receipt Date: 20040322
  Transmission Date: 20041129
  Serious: Yes (Death)
  Sender: FDA-Public Use
  Company Number: US-JNJFOC-20040305143

PATIENT
  Age: 43 Year
  Sex: Male
  Weight: 72.5755 kg

DRUGS (3)
  1. DURAGESIC [Suspect]
     Indication: INTENTIONAL MISUSE
     Dosage: ORAL
     Route: 048
     Dates: end: 20020301
  2. HYDROCODONE (HYDROCODONE) [Suspect]
     Dates: end: 20020301
  3. METHADONE HCL [Suspect]
     Dates: end: 20020301

REACTIONS (7)
  - CHOLELITHIASIS [None]
  - CIRRHOSIS ALCOHOLIC [None]
  - HEPATIC STEATOSIS [None]
  - MEDICATION ERROR [None]
  - MULTIPLE DRUG OVERDOSE [None]
  - PULMONARY CONGESTION [None]
  - VOMITING [None]
